FAERS Safety Report 9848107 (Version 1)
Quarter: 2013Q4

REPORT INFORMATION
  Report Type: Spontaneous
  Country: US (occurrence: None)
  Receive Date: 20131224
  Receipt Date: 20131224
  Transmission Date: 20140711
  Serious: Yes (Other)
  Sender: FDA-Public Use
  Company Number: PHEH2013US018363

PATIENT
  Age: 65 Year
  Sex: Male

DRUGS (3)
  1. AFINITOR (RAD) TABLET, 10MG [Suspect]
     Indication: PANCREATIC NEUROENDOCRINE TUMOUR
     Route: 048
  2. AVASTIN (BEVACIZUMAB) [Concomitant]
  3. SANDOSTATIN (OCTREOTIDE ACETATE) [Concomitant]

REACTIONS (2)
  - Weight decreased [None]
  - Aphthous stomatitis [None]
